FAERS Safety Report 19601028 (Version 2)
Quarter: 2021Q3

REPORT INFORMATION
  Report Type: Report from Study
  Country: CA (occurrence: CA)
  Receive Date: 20210722
  Receipt Date: 20210730
  Transmission Date: 20211014
  Serious: Yes (Death, Other)
  Sender: FDA-Public Use
  Company Number: CA-009507513-2107CAN006273

PATIENT
  Sex: Male

DRUGS (1)
  1. POSANOL [Suspect]
     Active Substance: POSACONAZOLE
     Indication: ANTIFUNGAL PROPHYLAXIS
     Dosage: 100 MILLIGRAM, DAILY, 60TAB
     Route: 048

REACTIONS (1)
  - Death [Fatal]
